FAERS Safety Report 5092766-5 (Version None)
Quarter: 2006Q3

REPORT INFORMATION
  Report Type: 
  Country: None (occurrence: None)
  Receive Date: 20060830
  Receipt Date: 20060615
  Transmission Date: 20061208
  Serious: Yes (Other)
  Sender: FDA-Public Use
  Company Number: CA-ABBOTT-06P-028-0336082-00

PATIENT
  Sex: Male

DRUGS (2)
  1. LIPIDIL SUPRA TABLET [Suspect]
     Indication: DRUG USE FOR UNKNOWN INDICATION
     Route: 048
  2. LIPIDIL SUPRA TABLET [Suspect]

REACTIONS (1)
  - MYOCARDIAL INFARCTION [None]
